FAERS Safety Report 8984978 (Version 1)
Quarter: 2012Q4

REPORT INFORMATION
  Report Type: 
  Country: US (occurrence: US)
  Receive Date: 20121226
  Receipt Date: 20121226
  Transmission Date: 20130627
  Serious: Yes (Life-Threatening, Other)
  Sender: FDA-Public Use
  Company Number: PHEH2012US025150

PATIENT
  Sex: Female

DRUGS (4)
  1. DIOVAN [Suspect]
     Dates: start: 2004
  2. VALSARTAN [Suspect]
  3. LOSARTAN [Suspect]
     Dosage: 50 mg, UNK
  4. TANENOL [Suspect]

REACTIONS (7)
  - Feeling abnormal [Unknown]
  - Hepatic pain [Unknown]
  - Limb discomfort [Unknown]
  - Nausea [Unknown]
  - Dizziness [Unknown]
  - Pain [Unknown]
  - Product substitution issue [None]
